FAERS Safety Report 9528697 (Version 1)
Quarter: 2013Q3

REPORT INFORMATION
  Report Type: Spontaneous
  Country: US (occurrence: US)
  Receive Date: 20130917
  Receipt Date: 20130917
  Transmission Date: 20140515
  Serious: No
  Sender: FDA-Public Use
  Company Number: US-BAUSCH-BL-2013-004183

PATIENT
  Age: 77 Year
  Sex: Female

DRUGS (2)
  1. ERYTHROMYCIN OPHTHALMIC OINTMENT USP 0.5% [Suspect]
     Indication: EYE LUBRICATION THERAPY
     Dosage: 1 RIBBON; AT BEDTIME; RIGHT EYE
     Route: 047
  2. ERYTHROMYCIN OPHTHALMIC OINTMENT USP 0.5% [Suspect]
     Dosage: 1 RIBBON; AT BEDTIME; LEFT EYE
     Route: 047

REACTIONS (2)
  - Off label use [Not Recovered/Not Resolved]
  - Eye irritation [Recovered/Resolved]
